FAERS Safety Report 25972130 (Version 1)
Quarter: 2025Q4

REPORT INFORMATION
  Report Type: Spontaneous
  Country: EU (occurrence: EU)
  Receive Date: 20251029
  Receipt Date: 20251029
  Transmission Date: 20260117
  Serious: Yes (Congenital Anomaly, Other)
  Sender: TORRENT PHARMA INC.
  Company Number: None

PATIENT
  Sex: Female
  Weight: 2 kg

DRUGS (6)
  1. LAMOTRIGINE [Suspect]
     Active Substance: LAMOTRIGINE
     Indication: Product used for unknown indication
     Dosage: MOTHER DOSE- 07/2023 TO 04/2024 FOR 262 D, SLOWLY INCREASED; 1ST TRIMESTER 400 MG/D (250-0-150),
     Route: 064
  2. PREGABALIN [Suspect]
     Active Substance: PREGABALIN
     Indication: Product used for unknown indication
     Dosage: MOTHER DOSE-150 MG/12 HRS FROM 07/2023 TO 04/2024 FOR 262 DAYS
     Route: 064
  3. Folic acid hydrate [Concomitant]
     Indication: Product used for unknown indication
     Dosage: MOTER DOSE- PER DAY FROM 10/2023 TO 04/2024 FOR 181 DAYS
     Route: 064
  4. ACETAMINOPHEN [Concomitant]
     Active Substance: ACETAMINOPHEN
     Indication: Product used for unknown indication
     Dosage: MOTHER DOSE- 500 MG AS NECESSARY MIN. 2X/WK
     Route: 064
  5. SUMATRIPTAN [Concomitant]
     Active Substance: SUMATRIPTAN
     Indication: Product used for unknown indication
     Dosage: MOTHER DOSE- 100 MG AS NECESSARY
     Route: 064
  6. TRAMADOL [Concomitant]
     Active Substance: TRAMADOL
     Indication: Product used for unknown indication
     Dosage: MOTHER DOSE- 100 MG AS NECESSARY FROM 07/2023 TO 04/2024 FOR 262 DAYS APPROXIMATELY 2-3X/MONTH
     Route: 064

REACTIONS (4)
  - Foetal exposure during pregnancy [Unknown]
  - Pulmonary artery stenosis congenital [Recovered/Resolved]
  - Atrial septal defect [Recovered/Resolved]
  - Small for dates baby [Recovered/Resolved]

NARRATIVE: CASE EVENT DATE: 20240401
